FAERS Safety Report 9383538 (Version 1)
Quarter: 2013Q3

REPORT INFORMATION
  Report Type: Spontaneous
  Country: US (occurrence: US)
  Receive Date: 20130704
  Receipt Date: 20130704
  Transmission Date: 20140515
  Serious: No
  Sender: FDA-Public Use
  Company Number: US-PFIZER INC-2013195655

PATIENT
  Sex: Male

DRUGS (1)
  1. CHANTIX [Suspect]
     Indication: SMOKING CESSATION THERAPY
     Dosage: UNK
     Dates: start: 20111003

REACTIONS (5)
  - Abnormal dreams [Unknown]
  - Sedation [Unknown]
  - Weight decreased [Unknown]
  - Feeling drunk [Unknown]
  - Therapeutic response unexpected [Unknown]
